FAERS Safety Report 8846683 (Version 2)
Quarter: 2013Q1

REPORT INFORMATION
  Report Type: Spontaneous
  Country: US (occurrence: US)
  Receive Date: 20121017
  Receipt Date: 20130109
  Transmission Date: 20140127
  Serious: Yes (Other)
  Sender: FDA-Public Use
  Company Number: US-PFIZER INC-2012257803

PATIENT
  Age: 41 Year
  Sex: Male
  Weight: 89.8 kg

DRUGS (6)
  1. NEURONTIN [Suspect]
     Indication: FIBROMYALGIA
     Dosage: 300 MG, 3X/DAY
  2. LYRICA [Suspect]
     Indication: AFFECTIVE DISORDER
     Dosage: 150 MG, 3X/DAY
     Dates: start: 2005
  3. LYRICA [Suspect]
     Indication: DEPRESSION
     Dosage: 150 MG, 3X/DAY
     Dates: start: 2007
  4. LYRICA [Suspect]
     Indication: FIBROMYALGIA
  5. ABILIFY [Concomitant]
     Indication: AFFECTIVE DISORDER
     Dosage: UNK
  6. ABILIFY [Concomitant]
     Indication: DEPRESSION

REACTIONS (2)
  - Convulsion [Unknown]
  - Dyskinesia [Unknown]
